FAERS Safety Report 10168758 (Version 1)
Quarter: 2014Q2

REPORT INFORMATION
  Report Type: Spontaneous
  Country: BE (occurrence: None)
  Receive Date: 20140509
  Receipt Date: 20140509
  Transmission Date: 20141212
  Serious: Yes (Other)
  Sender: FDA-Public Use
  Company Number: VAL_03107_2014

PATIENT
  Age: 36 Year
  Sex: Female

DRUGS (5)
  1. METOPROLOL (METOPROLOL - METOPROLOL TARTRATE) [Suspect]
     Indication: MYOCARDIAL INFARCTION
     Dosage: (100MG, DF)
  2. HYDRALAZINE [Suspect]
     Indication: ISCHAEMIC CARDIOMYOPATHY
  3. HYDRALAZINE [Suspect]
     Indication: MYOCARDIAL INFARCTION
  4. ASPIRIN [Suspect]
     Indication: ISCHAEMIC CARDIOMYOPATHY
     Dosage: 80MG DF
  5. ASPIRIN [Suspect]
     Indication: MYOCARDIAL INFARCTION
     Dosage: 80MG DF

REACTIONS (6)
  - Dyspnoea [None]
  - Ejection fraction decreased [None]
  - Oedema peripheral [None]
  - Induced labour [None]
  - Vacuum extractor delivery [None]
  - Cardiac failure [None]
